FAERS Safety Report 21754220 (Version 1)
Quarter: 2022Q4

REPORT INFORMATION
  Report Type: Report from Study
  Country: GB (occurrence: GB)
  Receive Date: 20221220
  Receipt Date: 20221220
  Transmission Date: 20230113
  Serious: Yes (Other)
  Sender: FDA-Public Use
  Company Number: GB-CATALYST PHARMACEUTICALS, INC-GB-CATA-22-02777

PATIENT

DRUGS (2)
  1. AMIFAMPRIDINE [Suspect]
     Active Substance: AMIFAMPRIDINE
     Indication: Congenital myasthenic syndrome
     Dosage: 100 MG/DAY
     Route: 064
  2. AMIFAMPRIDINE [Suspect]
     Active Substance: AMIFAMPRIDINE
     Dosage: 60 MG/DAY
     Route: 064

REACTIONS (2)
  - Attention deficit hyperactivity disorder [Unknown]
  - Autism spectrum disorder [Unknown]
